FAERS Safety Report 7385210-6 (Version None)
Quarter: 2011Q1

REPORT INFORMATION
  Report Type: 
  Country: None (occurrence: None)
  Receive Date: 20110330
  Receipt Date: 20110203
  Transmission Date: 20110831
  Serious: No
  Sender: FDA-Public Use
  Company Number: US-MYLANLABS-2011S1002430

PATIENT
  Age: 72 Year
  Sex: Female

DRUGS (3)
  1. ATENOLOL [Concomitant]
     Indication: BLOOD PRESSURE
     Route: 048
  2. NIFEDIPINE [Suspect]
     Indication: BLOOD PRESSURE INCREASED
     Route: 048
     Dates: start: 20101101
  3. AVALIDE [Concomitant]
     Indication: BLOOD PRESSURE
     Route: 048

REACTIONS (4)
  - BLOOD PRESSURE INCREASED [None]
  - DRUG EFFECT DECREASED [None]
  - PALPITATIONS [None]
  - TREMOR [None]
